FAERS Safety Report 17760726 (Version 1)
Quarter: 2020Q2

REPORT INFORMATION
  Report Type: Spontaneous
  Country: US (occurrence: US)
  Receive Date: 20200507
  Receipt Date: 20200507
  Transmission Date: 20200714
  Serious: Yes (Hospitalization)
  Sender: FDA-Public Use
  Company Number: None

PATIENT
  Age: 52 Year
  Sex: Male

DRUGS (7)
  1. BYSTOLIC [Concomitant]
     Active Substance: NEBIVOLOL HYDROCHLORIDE
  2. MESALAMINE. [Concomitant]
     Active Substance: MESALAMINE
  3. LIALDA [Concomitant]
     Active Substance: MESALAMINE
  4. MERCAPTORINE [Concomitant]
  5. AMLODIPINE [Concomitant]
     Active Substance: AMLODIPINE BESYLATE
  6. IRON [Concomitant]
     Active Substance: IRON
  7. REMICADE [Suspect]
     Active Substance: INFLIXIMAB
     Dosage: 10 MG GDV :1X EVERY6WKS  INTRAVENUS INFUSE?
     Route: 042
     Dates: start: 20180605

REACTIONS (1)
  - Hospitalisation [None]

NARRATIVE: CASE EVENT DATE: 20200507
